FAERS Safety Report 10090090 (Version 1)
Quarter: 2014Q2

REPORT INFORMATION
  Report Type: Spontaneous
  Country: US (occurrence: None)
  Receive Date: 20140417
  Receipt Date: 20140417
  Transmission Date: 20141212
  Serious: Yes (Death)
  Sender: FDA-Public Use
  Company Number: UTC-047007

PATIENT
  Age: 51 Year
  Sex: Female
  Weight: 67.13 kg

DRUGS (3)
  1. REMODULIN [Suspect]
     Indication: COR PULMONALE CHRONIC
     Dosage: 72UG/KG (0.05 UG/KG, 1 IN 1 MIN) INTRAVENOUS DRIP
     Route: 041
     Dates: start: 20130531
  2. LETAIRIS (AMBRISENTAN) [Concomitant]
  3. REVATIO (SILDENAPIL CITRATE) [Concomitant]

REACTIONS (1)
  - Death [None]
